FAERS Safety Report 5502030-5 (Version None)
Quarter: 2007Q4

REPORT INFORMATION
  Report Type: 
  Country: None (occurrence: None)
  Receive Date: 20071030
  Receipt Date: 20060905
  Transmission Date: 20080405
  Serious: No
  Sender: FDA-Public Use
  Company Number: A0619066A

PATIENT
  Age: 58 Year
  Sex: Male

DRUGS (16)
  1. IMITREX [Suspect]
     Indication: MIGRAINE
     Dosage: 20MG AS REQUIRED
     Route: 045
  2. IMITREX [Suspect]
     Route: 048
  3. NEURONTIN [Concomitant]
  4. LORATADINE [Concomitant]
  5. EXCEDRIN (ASPIRIN FREE) [Concomitant]
  6. PSEUDOEPHEDRINE HCL [Concomitant]
  7. GLUCOSAMINE CHONDROITIN [Concomitant]
  8. CAFFEINE [Concomitant]
  9. POTASSIUM CITRATE [Concomitant]
  10. ALLOPURINOL [Concomitant]
  11. RANITIDINE [Concomitant]
  12. TOPAMAX [Concomitant]
  13. CELEBREX [Concomitant]
  14. HYDROCHLOROTHIAZIDE [Concomitant]
  15. SINGULAIR [Concomitant]
  16. BENADRYL [Concomitant]

REACTIONS (3)
  - DRUG HYPERSENSITIVITY [None]
  - DRUG INEFFECTIVE [None]
  - NAUSEA [None]
